FAERS Safety Report 8992729 (Version 1)
Quarter: 2013Q1

REPORT INFORMATION
  Report Type: Spontaneous
  Country: GB (occurrence: GB)
  Receive Date: 20130102
  Receipt Date: 20130102
  Transmission Date: 20140127
  Serious: Yes (Hospitalization)
  Sender: FDA-Public Use
  Company Number: GB-ROCHE-1175807

PATIENT
  Age: 58 Year
  Sex: Male
  Weight: 80 kg

DRUGS (7)
  1. TENECTEPLASE [Suspect]
     Indication: THROMBOLYSIS
     Dosage: 9000 IU
     Route: 042
     Dates: start: 20100318
  2. ENOXAPARIN [Suspect]
     Indication: THROMBOLYSIS
     Route: 058
     Dates: start: 20100318
  3. HEPARIN [Suspect]
     Indication: THROMBOLYSIS
     Route: 042
     Dates: start: 20100318
  4. ASPIRIN [Concomitant]
     Indication: MYOCARDIAL INFARCTION
     Route: 048
     Dates: start: 20100318
  5. CLOPIDOGREL [Concomitant]
     Indication: ACUTE MYOCARDIAL INFARCTION
     Route: 048
     Dates: start: 20100318
  6. RAMIPRIL [Concomitant]
     Indication: HYPERTENSION
     Route: 048
     Dates: start: 20100318
  7. SIMVASTATIN [Concomitant]
     Route: 048
     Dates: start: 20100318

REACTIONS (1)
  - Haematemesis [Not Recovered/Not Resolved]
